FAERS Safety Report 9832417 (Version 2)
Quarter: 2014Q1

REPORT INFORMATION
  Report Type: Spontaneous
  Country: CA (occurrence: CA)
  Receive Date: 20140121
  Receipt Date: 20140129
  Transmission Date: 20141002
  Serious: Yes (Other)
  Sender: FDA-Public Use
  Company Number: CA-JNJFOC-20140110194

PATIENT
  Sex: Male

DRUGS (5)
  1. ZYTIGA [Suspect]
     Indication: PRODUCT USED FOR UNKNOWN INDICATION
     Route: 048
     Dates: start: 2011
  2. PRAVASTATIN [Concomitant]
     Route: 065
  3. CALCIUM [Concomitant]
     Route: 065
  4. VITAMIN D [Concomitant]
     Route: 065
  5. SALBUTAMOL [Concomitant]
     Route: 065

REACTIONS (1)
  - Pulmonary fibrosis [Unknown]
